FAERS Safety Report 26097976 (Version 1)
Quarter: 2025Q4

REPORT INFORMATION
  Report Type: Spontaneous
  Country: EU (occurrence: EU)
  Receive Date: 20251127
  Receipt Date: 20251127
  Transmission Date: 20260117
  Serious: Yes (Life-Threatening, Other)
  Sender: PFIZER
  Company Number: EU-PFIZER INC-PV202500139955

PATIENT
  Age: 38 Year
  Sex: Female
  Weight: 50 kg

DRUGS (2)
  1. INFLIXIMAB [Suspect]
     Active Substance: INFLIXIMAB
     Indication: Crohn^s disease
     Dosage: ADMINISTERED 3 TIMES TOTAL
     Route: 042
     Dates: start: 202312
  2. INFLIXIMAB [Suspect]
     Active Substance: INFLIXIMAB
     Dosage: ADMINISTERED 3 TIMES TOTAL
     Route: 042
     Dates: start: 202401

REACTIONS (1)
  - Mania [Recovered/Resolved]

NARRATIVE: CASE EVENT DATE: 20240101
